FAERS Safety Report 15088228 (Version 1)
Quarter: 2018Q2

REPORT INFORMATION
  Report Type: Spontaneous
  Country: GB (occurrence: GB)
  Receive Date: 20180629
  Receipt Date: 20180629
  Transmission Date: 20180711
  Serious: Yes (Disabling)
  Sender: FDA-Public Use
  Company Number: GB-TEVA-2018-GB-914455

PATIENT
  Age: 82 Year
  Sex: Female

DRUGS (8)
  1. EZETROL [Concomitant]
     Active Substance: EZETIMIBE
     Route: 065
  2. BONVIVA [Concomitant]
     Active Substance: IBANDRONATE SODIUM
     Route: 065
  3. PARACETAMOL [Concomitant]
     Active Substance: ACETAMINOPHEN
     Route: 065
  4. LAXIDO [Concomitant]
     Active Substance: POLYETHYLENE GLYCOL 3350\POTASSIUM CHLORIDE\SODIUM BICARBONATE\SODIUM CHLORIDE
     Route: 065
  5. LANSOPRAZOLE. [Concomitant]
     Active Substance: LANSOPRAZOLE
     Route: 065
  6. METRONIDAZOLE. [Suspect]
     Active Substance: METRONIDAZOLE
     Dosage: 3 DOSAGE FORMS DAILY;
     Route: 048
  7. ADCAL-D3 [Concomitant]
     Active Substance: CALCIUM CARBONATE\CHOLECALCIFEROL
     Route: 065
  8. VENLAFAXINE HYDROCHLORIDE. [Concomitant]
     Active Substance: VENLAFAXINE HYDROCHLORIDE
     Route: 065

REACTIONS (6)
  - Depression [Unknown]
  - Decreased appetite [Unknown]
  - Chromaturia [Unknown]
  - Dysgeusia [Unknown]
  - Vision blurred [Recovered/Resolved]
  - Fatigue [Unknown]
